FAERS Safety Report 12455423 (Version 1)
Quarter: 2016Q2

REPORT INFORMATION
  Report Type: Spontaneous
  Country: US (occurrence: None)
  Receive Date: 20160609
  Receipt Date: 20160609
  Transmission Date: 20160815
  Serious: Yes (Disabling)
  Sender: FDA-Public Use
  Company Number: None

PATIENT
  Age: 79 Year
  Sex: Female
  Weight: 84.37 kg

DRUGS (19)
  1. KENALOG [Suspect]
     Active Substance: TRIAMCINOLONE ACETONIDE
     Indication: PERIPHERAL SWELLING
     Dosage: 1-7 INJECTIONS SEVEN 7 SESSIONS INJECTIONS 7X
     Dates: start: 20150826, end: 20151117
  2. TAZTIA XT [Concomitant]
     Active Substance: DILTIAZEM HYDROCHLORIDE
  3. ENALAPRIL [Concomitant]
     Active Substance: ENALAPRIL
  4. METFORMIN [Suspect]
     Active Substance: METFORMIN HYDROCHLORIDE
  5. MAGNESIUM [Concomitant]
     Active Substance: MAGNESIUM
  6. DICYCLOMINE [Concomitant]
     Active Substance: DICYCLOMINE HYDROCHLORIDE
  7. LORAZEPAM. [Concomitant]
     Active Substance: LORAZEPAM
  8. IBUPROFEN. [Concomitant]
     Active Substance: IBUPROFEN
  9. KENALOG [Suspect]
     Active Substance: TRIAMCINOLONE ACETONIDE
     Indication: PAIN IN EXTREMITY
     Dosage: 1-7 INJECTIONS SEVEN 7 SESSIONS INJECTIONS 7X
     Dates: start: 20150826, end: 20151117
  10. KENALOG [Suspect]
     Active Substance: TRIAMCINOLONE ACETONIDE
     Indication: BACK PAIN
     Dosage: 1-7 INJECTIONS SEVEN 7 SESSIONS INJECTIONS 7X
     Dates: start: 20150826, end: 20151117
  11. GLIMEPIRIDE. [Concomitant]
     Active Substance: GLIMEPIRIDE
  12. HYDROCODONE [Concomitant]
     Active Substance: HYDROCODONE
  13. VITAMIN D [Concomitant]
     Active Substance: CHOLECALCIFEROL
  14. RED WINE [Concomitant]
     Active Substance: RED WINE
  15. KENALOG [Suspect]
     Active Substance: TRIAMCINOLONE ACETONIDE
     Indication: ABDOMINAL PAIN
     Dosage: 1-7 INJECTIONS SEVEN 7 SESSIONS INJECTIONS 7X
     Dates: start: 20150826, end: 20151117
  16. OMEPRAZOLE. [Concomitant]
     Active Substance: OMEPRAZOLE
  17. PLUS CELL [Concomitant]
  18. LOMOTIL [Concomitant]
     Active Substance: ATROPINE SULFATE\DIPHENOXYLATE HYDROCHLORIDE
  19. VITAMIN C [Concomitant]
     Active Substance: ASCORBIC ACID

REACTIONS (7)
  - Urinary retention [None]
  - Skin discolouration [None]
  - Peripheral swelling [None]
  - Pain [None]
  - Hair growth abnormal [None]
  - Alopecia [None]
  - Neoplasm skin [None]

NARRATIVE: CASE EVENT DATE: 20151012
